FAERS Safety Report 17845729 (Version 3)
Quarter: 2021Q1

REPORT INFORMATION
  Report Type: Spontaneous
  Country: IL (occurrence: IL)
  Receive Date: 20200601
  Receipt Date: 20210127
  Transmission Date: 20210419
  Serious: Yes (Hospitalization)
  Sender: FDA-Public Use
  Company Number: IL-KYOWAKIRIN-2020BKK008662

PATIENT

DRUGS (2)
  1. CRYSVITA [Suspect]
     Active Substance: BUROSUMAB-TWZA
     Dosage: 35 MG
     Route: 065
     Dates: start: 202005, end: 20200505
  2. CRYSVITA [Suspect]
     Active Substance: BUROSUMAB-TWZA
     Indication: HEREDITARY HYPOPHOSPHATAEMIC RICKETS
     Dosage: 70 MG, 1 MG/KG,  ONCE A MONTH
     Route: 065
     Dates: start: 202004, end: 202004

REACTIONS (4)
  - Back pain [Recovering/Resolving]
  - Vertebral foraminal stenosis [Unknown]
  - Flank pain [Recovering/Resolving]
  - Incorrect dose administered [Recovered/Resolved]

NARRATIVE: CASE EVENT DATE: 202004
